FAERS Safety Report 12477221 (Version 2)
Quarter: 2016Q3

REPORT INFORMATION
  Report Type: Spontaneous
  Country: JP (occurrence: JP)
  Receive Date: 20160617
  Receipt Date: 20160706
  Transmission Date: 20161109
  Serious: Yes (Life-Threatening, Hospitalization)
  Sender: FDA-Public Use
  Company Number: JP-ACTAVIS-2016-12508

PATIENT
  Age: 50 Year
  Sex: Female

DRUGS (6)
  1. OLANZAPINE (UNKNOWN) [Suspect]
     Active Substance: OLANZAPINE
     Indication: PSYCHOTIC DISORDER
     Dosage: 10 MG, DAILY
     Route: 065
  2. VALPROIC ACID. [Interacting]
     Active Substance: VALPROIC ACID
     Indication: PSYCHOTIC DISORDER
     Dosage: 200 MG, DAILY
     Route: 065
  3. OLANZAPINE (UNKNOWN) [Suspect]
     Active Substance: OLANZAPINE
     Dosage: 20 MG, DAILY
     Route: 065
  4. QUETIAPINE (UNKNOWN) [Suspect]
     Active Substance: QUETIAPINE
     Indication: PSYCHOTIC DISORDER
     Dosage: 200 MG, DAILY
     Route: 065
  5. VALPROIC ACID. [Interacting]
     Active Substance: VALPROIC ACID
     Dosage: 1000 MG, DAILY
     Route: 065
  6. PALIPERIDONE. [Interacting]
     Active Substance: PALIPERIDONE
     Indication: PSYCHOTIC DISORDER
     Dosage: OVER 2 WEEKS
     Route: 065

REACTIONS (4)
  - Leukopenia [Recovered/Resolved]
  - Neutropenia [Recovered/Resolved]
  - Drug ineffective [Unknown]
  - Drug interaction [Recovered/Resolved]
